FAERS Safety Report 8451611-8 (Version None)
Quarter: 2012Q2

REPORT INFORMATION
  Report Type: 
  Country: None (occurrence: None)
  Receive Date: 20120620
  Receipt Date: 20120327
  Transmission Date: 20120825
  Serious: No
  Sender: FDA-Public Use
  Company Number: US-VERTEX PHARMACEUTICALS INC.-AE-2012-003420

PATIENT
  Sex: Female
  Weight: 87.168 kg

DRUGS (6)
  1. TRAMADOL HCL [Concomitant]
     Indication: ANXIETY
     Route: 048
  2. RIBAVIRIN [Concomitant]
     Indication: HEPATITIS C
     Route: 048
     Dates: start: 20120201, end: 20120228
  3. RIBAVIRIN [Concomitant]
     Route: 048
     Dates: start: 20120228, end: 20120308
  4. HYDROCHLOROTHIAZIDE [Concomitant]
     Indication: HYPERTENSION
     Route: 048
  5. PEGASYS [Concomitant]
     Indication: HEPATITIS C
     Route: 058
     Dates: start: 20120201, end: 20120308
  6. INCIVEK [Suspect]
     Indication: HEPATITIS C
     Route: 048
     Dates: start: 20120201, end: 20120308

REACTIONS (7)
  - ASTHENIA [None]
  - DECREASED APPETITE [None]
  - HAEMOGLOBIN DECREASED [None]
  - VOMITING [None]
  - ANAL PRURITUS [None]
  - ANORECTAL DISCOMFORT [None]
  - FATIGUE [None]
